FAERS Safety Report 9010180 (Version 1)
Quarter: 2013Q1

REPORT INFORMATION
  Report Type: Spontaneous
  Country: US (occurrence: US)
  Receive Date: 20130110
  Receipt Date: 20130110
  Transmission Date: 20140127
  Serious: Yes (Disabling)
  Sender: FDA-Public Use
  Company Number: PHEH2013US000784

PATIENT
  Sex: Female

DRUGS (8)
  1. DIOVAN [Suspect]
     Dosage: 80 MG, UNK
  2. DIOVAN HCT [Suspect]
     Dosage: 1 DF (320 MG VALS AND 25 MG HCTZ), UNK
  3. TOPROL [Concomitant]
  4. AMLODIPINE [Concomitant]
     Dosage: 5 MG, UNK
  5. CRESTOR [Concomitant]
  6. SEROQUEL [Concomitant]
  7. SPIRIVA [Concomitant]
  8. FORADIL [Concomitant]

REACTIONS (1)
  - Chronic respiratory failure [Unknown]
